FAERS Safety Report 18394475 (Version 2)
Quarter: 2020Q4

REPORT INFORMATION
  Report Type: Spontaneous
  Country: IT (occurrence: IT)
  Receive Date: 20201016
  Receipt Date: 20201214
  Transmission Date: 20210114
  Serious: Yes (Hospitalization)
  Sender: FDA-Public Use
  Company Number: IT-ALLERGAN-2039294US

PATIENT
  Sex: Female

DRUGS (2)
  1. CIPROXIN [Suspect]
     Active Substance: CIPROFLOXACIN
     Indication: CYSTITIS
     Dosage: UNK
     Route: 048
  2. FOSFOMYCIN TROMETHAMINE - BP [Suspect]
     Active Substance: FOSFOMYCIN TROMETHAMINE
     Indication: URINARY TRACT INFECTION
     Dosage: 3 G, QD
     Route: 048
     Dates: start: 20200808, end: 20200809

REACTIONS (8)
  - Drug resistance [Unknown]
  - Vulvovaginal discomfort [Recovering/Resolving]
  - Hyperpyrexia [Recovering/Resolving]
  - Pelvic pain [Recovering/Resolving]
  - Overdose [Unknown]
  - Menstruation irregular [Recovering/Resolving]
  - Dysuria [Recovering/Resolving]
  - Drug ineffective [Unknown]

NARRATIVE: CASE EVENT DATE: 202008
